FAERS Safety Report 23867891 (Version 2)
Quarter: 2024Q4

REPORT INFORMATION
  Report Type: Spontaneous
  Country: US (occurrence: US)
  Receive Date: 20240517
  Receipt Date: 20241105
  Transmission Date: 20250115
  Serious: No
  Sender: PFIZER
  Company Number: US-PFIZER INC-202400109737

PATIENT
  Age: 60 Year
  Sex: Male

DRUGS (3)
  1. INLYTA [Suspect]
     Active Substance: AXITINIB
     Dosage: 3 TABLETS (3 MG) EVERY 12 HOURS
     Dates: start: 202008
  2. INLYTA [Suspect]
     Active Substance: AXITINIB
     Dosage: 2 TABS TWICE A DAY
     Dates: start: 202402
  3. INLYTA [Suspect]
     Active Substance: AXITINIB
     Dosage: 1 MG TABLET- 2 TABLETS (2MG) EVERY 12 HOURS

REACTIONS (5)
  - Gastrointestinal disorder [Recovering/Resolving]
  - Dysphonia [Recovering/Resolving]
  - Oral discomfort [Recovering/Resolving]
  - Throat irritation [Unknown]
  - Eating disorder [Unknown]

NARRATIVE: CASE EVENT DATE: 20240201
